FAERS Safety Report 13918133 (Version 2)
Quarter: 2017Q4

REPORT INFORMATION
  Report Type: Spontaneous
  Country: US (occurrence: US)
  Receive Date: 20170829
  Receipt Date: 20171010
  Transmission Date: 20180320
  Serious: Yes (Disabling, Other)
  Sender: FDA-Public Use
  Company Number: US-REGENERON PHARMACEUTICALS, INC.-2017-20656

PATIENT

DRUGS (2)
  1. EYLEA [Suspect]
     Active Substance: AFLIBERCEPT
     Dosage: LAST DOSE, EVERY 8 TO 9 WEEKS, LEFT EYE
     Route: 031
     Dates: start: 20170818, end: 20170818
  2. EYLEA [Suspect]
     Active Substance: AFLIBERCEPT
     Indication: NEOVASCULAR AGE-RELATED MACULAR DEGENERATION
     Dosage: 2 MG, EVERY 8-9 WEEKS, BILATERAL EYES
     Route: 031
     Dates: start: 20161129

REACTIONS (3)
  - Blindness transient [Not Recovered/Not Resolved]
  - Intraocular pressure increased [Recovered/Resolved]
  - Endophthalmitis [Recovering/Resolving]

NARRATIVE: CASE EVENT DATE: 20170821
